FAERS Safety Report 6879546-2 (Version None)
Quarter: 2010Q3

REPORT INFORMATION
  Report Type: 
  Country: None (occurrence: None)
  Receive Date: 20100728
  Receipt Date: 20100713
  Transmission Date: 20110219
  Serious: Yes (Other)
  Sender: FDA-Public Use
  Company Number: PHHY2010CH36658

PATIENT
  Sex: Female

DRUGS (5)
  1. EXJADE [Suspect]
     Indication: IRON OVERLOAD
     Dosage: UNK
     Route: 048
     Dates: start: 20080601, end: 20091201
  2. EXJADE [Suspect]
     Dosage: UNK
     Dates: start: 20100501, end: 20100601
  3. FOSAMAX [Concomitant]
     Indication: OSTEOPOROSIS
     Dosage: UNK
     Dates: start: 20040101
  4. VITAMIN D [Concomitant]
     Indication: OSTEOPOROSIS
     Dosage: UNK
     Dates: start: 20040101
  5. CALCIUM [Concomitant]
     Indication: OSTEOPOROSIS
     Dosage: UNK
     Dates: start: 20040101

REACTIONS (5)
  - BACK PAIN [None]
  - OSTEOPOROSIS [None]
  - SERUM FERRITIN INCREASED [None]
  - SPINAL COMPRESSION FRACTURE [None]
  - SPINAL OPERATION [None]
